FAERS Safety Report 13330353 (Version 1)
Quarter: 2017Q1

REPORT INFORMATION
  Report Type: Spontaneous
  Country: AR (occurrence: AR)
  Receive Date: 20170313
  Receipt Date: 20170313
  Transmission Date: 20170428
  Serious: Yes (Hospitalization)
  Sender: FDA-Public Use
  Company Number: AR-009507513-1703ARG005531

PATIENT
  Age: 80 Year
  Sex: Male

DRUGS (1)
  1. CUBICIN [Suspect]
     Active Substance: DAPTOMYCIN
     Indication: OSTEOMYELITIS
     Dosage: 1 AMPULE OF 500 MG, EVERY 48 HOURS
     Dates: start: 201612

REACTIONS (2)
  - Adverse event [Recovering/Resolving]
  - Product availability issue [Unknown]
